FAERS Safety Report 11210887 (Version 4)
Quarter: 2015Q3

REPORT INFORMATION
  Report Type: Spontaneous
  Country: RO (occurrence: RO)
  Receive Date: 20150622
  Receipt Date: 20150812
  Transmission Date: 20151125
  Serious: Yes (Hospitalization)
  Sender: FDA-Public Use
  Company Number: RO-AMGEN-ROUSP2015060483

PATIENT
  Age: 44 Year
  Sex: Male
  Weight: 80 kg

DRUGS (2)
  1. LAGOSA [Concomitant]
     Indication: HEPATITIS B ANTIBODY POSITIVE
     Dosage: 2 DF, 1X/DAY
     Route: 048
     Dates: start: 20131010, end: 20150612
  2. ENBREL [Suspect]
     Active Substance: ETANERCEPT
     Indication: PSORIASIS
     Dosage: 50 MG, WEEKLY
     Route: 058
     Dates: start: 20131012, end: 20150612

REACTIONS (2)
  - Large intestine polyp [Unknown]
  - Rectal cancer [Recovering/Resolving]

NARRATIVE: CASE EVENT DATE: 201404
